FAERS Safety Report 6080579-7 (Version None)
Quarter: 2009Q1

REPORT INFORMATION
  Report Type: 
  Country: None (occurrence: None)
  Receive Date: 20090217
  Receipt Date: 20090212
  Transmission Date: 20090719
  Serious: Yes (Other)
  Sender: FDA-Public Use
  Company Number: D0060488A

PATIENT
  Age: 50 Year
  Sex: Male

DRUGS (3)
  1. IMIGRAN [Suspect]
     Dosage: 100MG SEE DOSAGE TEXT
     Route: 048
     Dates: start: 20090211, end: 20090211
  2. PROPAFENONE HCL [Suspect]
     Dosage: 150MG SEE DOSAGE TEXT
     Route: 048
     Dates: start: 20090211, end: 20090211
  3. SLEEPING PILLS [Suspect]
     Route: 048
     Dates: start: 20090211, end: 20090211

REACTIONS (2)
  - INTENTIONAL OVERDOSE [None]
  - SUICIDE ATTEMPT [None]
